FAERS Safety Report 7554253-1 (Version None)
Quarter: 2011Q2

REPORT INFORMATION
  Report Type: 
  Country: None (occurrence: None)
  Receive Date: 20110617
  Receipt Date: 20110615
  Transmission Date: 20111010
  Serious: No
  Sender: FDA-Public Use
  Company Number: US-PFIZER INC-2011131979

PATIENT
  Sex: Male
  Weight: 73 kg

DRUGS (8)
  1. LEXAPRO [Suspect]
     Indication: PANIC DISORDER
     Dosage: UNK
  2. PRILOSEC [Concomitant]
     Indication: GASTROOESOPHAGEAL REFLUX DISEASE
     Dosage: UNK
  3. EFFEXOR [Suspect]
     Indication: PANIC DISORDER
     Dosage: UNK
  4. XANAX [Suspect]
     Indication: ANXIETY DISORDER
     Dosage: 1 MG, 1X/DAY
  5. EFFEXOR [Suspect]
     Indication: ANXIETY DISORDER
  6. XANAX [Suspect]
     Indication: PANIC DISORDER
     Dosage: 0.5 MG, UNK
  7. LEXAPRO [Suspect]
     Indication: ANXIETY DISORDER
  8. XANAX [Suspect]
     Dosage: 2 MG, 2X/DAY

REACTIONS (7)
  - DIARRHOEA [None]
  - ANXIETY [None]
  - MALAISE [None]
  - STRESS [None]
  - MEDICATION RESIDUE [None]
  - DRUG INEFFECTIVE [None]
  - NAUSEA [None]
